FAERS Safety Report 25594014 (Version 2)
Quarter: 2025Q3

REPORT INFORMATION
  Report Type: Report from Study
  Country: CA (occurrence: CA)
  Receive Date: 20250723
  Receipt Date: 20250731
  Transmission Date: 20251020
  Serious: Yes (Other)
  Sender: NOVARTIS
  Company Number: CA-002147023-NVSC2025CA114653

PATIENT
  Age: 36 Year
  Sex: Female

DRUGS (1)
  1. COSENTYX [Suspect]
     Active Substance: SECUKINUMAB
     Indication: Hidradenitis
     Dosage: 300 MG, QMO
     Route: 058
     Dates: start: 20250617

REACTIONS (9)
  - Pneumonia [Unknown]
  - Illness [Unknown]
  - Urinary tract infection [Unknown]
  - Asthenia [Unknown]
  - Cough [Unknown]
  - Hidradenitis [Unknown]
  - Condition aggravated [Unknown]
  - Product temperature excursion issue [Unknown]
  - Rhinorrhoea [Unknown]
